APPROVED DRUG PRODUCT: POTASSIUM CHLORIDE
Active Ingredient: POTASSIUM CHLORIDE
Strength: 10MEQ
Dosage Form/Route: CAPSULE, EXTENDED RELEASE;ORAL
Application: A073532 | Product #001
Applicant: TEVA PHARMACEUTICALS USA INC
Approved: Apr 26, 1996 | RLD: No | RS: No | Type: DISCN